FAERS Safety Report 25768848 (Version 1)
Quarter: 2025Q3

REPORT INFORMATION
  Report Type: Spontaneous
  Country: EU (occurrence: EU)
  Receive Date: 20250905
  Receipt Date: 20250905
  Transmission Date: 20251020
  Serious: Yes (Disabling)
  Sender: NOVARTIS
  Company Number: EU-ORG100013279-032960

PATIENT
  Age: 45 Year
  Sex: Male
  Weight: 88 kg

DRUGS (2)
  1. TERBINAFINE [Suspect]
     Active Substance: TERBINAFINE
     Indication: Product used for unknown indication
     Route: 065
  2. BISOLVON [Suspect]
     Active Substance: BROMHEXINE HYDROCHLORIDE
     Indication: Cough
     Route: 048
     Dates: start: 20250808, end: 20250810

REACTIONS (3)
  - Chills [Recovering/Resolving]
  - Confusional state [Recovering/Resolving]
  - Drug interaction [Recovering/Resolving]

NARRATIVE: CASE EVENT DATE: 20250809
